FAERS Safety Report 4523449-5 (Version None)
Quarter: 2004Q4

REPORT INFORMATION
  Report Type: 
  Country: None (occurrence: None)
  Receive Date: 20041208
  Receipt Date: 20041129
  Transmission Date: 20050328
  Serious: Yes (Other)
  Sender: FDA-Public Use
  Company Number: US-2004-033428

PATIENT
  Age: 43 Year
  Sex: Female
  Weight: 60.8 kg

DRUGS (9)
  1. BETASERON [Suspect]
     Indication: MULTIPLE SCLEROSIS
     Dosage: 8 MIU, EVERY 2D, SUBCUTANEOUS
     Route: 058
     Dates: start: 20020805
  2. MICROGESTIN FE [Concomitant]
  3. AMBIEN [Concomitant]
  4. BENADRYL ^ACHE^ (AMMONIUM CHLORIDE, MENTHOL, DIPHENHYDRAMINE HYDROCHLO [Concomitant]
  5. TESTOSTERONE [Concomitant]
  6. XANAX [Concomitant]
  7. OXYCONTIN [Concomitant]
  8. LEXAPRO [Concomitant]
  9. TOPAMAX [Concomitant]

REACTIONS (5)
  - ABDOMINAL PAIN [None]
  - DECREASED APPETITE [None]
  - HAEMANGIOMA OF LIVER [None]
  - INTESTINAL FUNCTIONAL DISORDER [None]
  - WEIGHT DECREASED [None]
